FAERS Safety Report 4763914-9 (Version None)
Quarter: 2005Q3

REPORT INFORMATION
  Report Type: 
  Country: None (occurrence: None)
  Receive Date: 20050906
  Receipt Date: 20050825
  Transmission Date: 20060218
  Serious: Yes (Other)
  Sender: FDA-Public Use
  Company Number: 2005120070

PATIENT
  Age: 22 Year
  Sex: Male
  Weight: 87.0906 kg

DRUGS (1)
  1. BENADRYL [Suspect]
     Indication: PRURITUS
     Dosage: 5-8 KAPSEALS ONCE/DAY, ORAL
     Route: 048
     Dates: start: 20040101, end: 20050822

REACTIONS (6)
  - ABDOMINAL MASS [None]
  - APPENDICITIS [None]
  - DRUG DEPENDENCE [None]
  - LOSS OF CONSCIOUSNESS [None]
  - ROAD TRAFFIC ACCIDENT [None]
  - SOMNOLENCE [None]
